FAERS Safety Report 9135693 (Version 1)
Quarter: 2013Q1

REPORT INFORMATION
  Report Type: Spontaneous
  Country: US (occurrence: US)
  Receive Date: 20130304
  Receipt Date: 20130304
  Transmission Date: 20140127
  Serious: No
  Sender: FDA-Public Use
  Company Number: US-ENDO PHARMACEUTICALS INC.-OPER20100193

PATIENT
  Age: 36 Year
  Sex: Male
  Weight: 98.06 kg

DRUGS (3)
  1. OPANA ER [Suspect]
     Indication: BACK PAIN
     Dosage: 10 OR 20 MG
     Route: 048
     Dates: start: 201006
  2. PERCOCET [Suspect]
     Indication: BACK PAIN
     Dosage: 10/325 MG
     Route: 048
     Dates: start: 201007
  3. OXYCONTIN [Suspect]
     Indication: BACK PAIN
     Dosage: 20 MG
     Route: 048
     Dates: start: 201007

REACTIONS (1)
  - Drug screen positive [Unknown]
